FAERS Safety Report 5720583-9 (Version None)
Quarter: 2008Q2

REPORT INFORMATION
  Report Type: 
  Country: None (occurrence: None)
  Receive Date: 20080428
  Receipt Date: 20080428
  Transmission Date: 20081010
  Serious: Yes (Hospitalization)
  Sender: FDA-Public Use
  Company Number: None

PATIENT
  Age: 83 Year
  Sex: Male

DRUGS (2)
  1. FUROSEMIDE [Suspect]
     Indication: DIURETIC THERAPY
     Dosage: 80MG BID PO
     Route: 048
  2. METOLAZONE [Suspect]
     Indication: DIURETIC THERAPY
     Dosage: 2.5MG DAILY PO
     Route: 048

REACTIONS (7)
  - ACUTE PRERENAL FAILURE [None]
  - ASTHENIA [None]
  - BLOOD CREATININE INCREASED [None]
  - DIZZINESS [None]
  - HYPOKALAEMIA [None]
  - HYPOVOLAEMIA [None]
  - METABOLIC ALKALOSIS [None]
